FAERS Safety Report 9115887 (Version 2)
Quarter: 2013Q1

REPORT INFORMATION
  Report Type: Spontaneous
  Country: US (occurrence: US)
  Receive Date: 20130225
  Receipt Date: 20130319
  Transmission Date: 20140127
  Serious: Yes (Death, Hospitalization)
  Sender: FDA-Public Use
  Company Number: US-GLAXOSMITHKLINE-A1013489A

PATIENT
  Age: 83 Year
  Sex: Male

DRUGS (1)
  1. PROMACTA [Suspect]
     Indication: AUTOIMMUNE THROMBOCYTOPENIA
     Dosage: 75MG PER DAY
     Route: 048
     Dates: start: 20100112

REACTIONS (4)
  - Death [Fatal]
  - Acute myocardial infarction [Fatal]
  - Dyspnoea [Unknown]
  - Cardiac enzymes increased [Unknown]
